FAERS Safety Report 21491032 (Version 1)
Quarter: 2022Q4

REPORT INFORMATION
  Report Type: Report from Study
  Country: IT (occurrence: IT)
  Receive Date: 20221021
  Receipt Date: 20221021
  Transmission Date: 20230113
  Serious: Yes (Other)
  Sender: FDA-Public Use
  Company Number: IT-SUN PHARMACEUTICAL INDUSTRIES LTD-2022R1-360258

PATIENT
  Age: 37 Year
  Sex: Female

DRUGS (2)
  1. CARBOPLATIN [Suspect]
     Active Substance: CARBOPLATIN
     Indication: Squamous cell carcinoma
     Dosage: UNK (5AUC X 4)
     Route: 065
  2. PACLITAXEL [Suspect]
     Active Substance: PACLITAXEL
     Indication: Squamous cell carcinoma
     Dosage: UNK (175 MG/MQ Q 21 X 4)
     Route: 065

REACTIONS (4)
  - Premature delivery [Unknown]
  - Therapy partial responder [Unknown]
  - Gestational diabetes [Unknown]
  - Exposure during pregnancy [Unknown]
